FAERS Safety Report 9027093 (Version 1)
Quarter: 2013Q1

REPORT INFORMATION
  Report Type: Spontaneous
  Country: DK (occurrence: DK)
  Receive Date: 20130123
  Receipt Date: 20130123
  Transmission Date: 20140127
  Serious: Yes (Other)
  Sender: FDA-Public Use
  Company Number: DK-PFIZER INC-2013028226

PATIENT
  Age: 64 Year
  Sex: Female

DRUGS (8)
  1. GEMCITABINE [Suspect]
     Indication: BREAST CANCER
     Dosage: UNK
     Route: 065
     Dates: start: 201012
  2. VINORELBINE [Suspect]
     Indication: BREAST CANCER
     Dosage: UNK
     Route: 065
     Dates: start: 200406, end: 200505
  3. TAXOL [Suspect]
     Indication: BREAST CANCER
     Dosage: UNK
     Route: 065
     Dates: start: 200906
  4. XELODA [Suspect]
     Indication: BREAST CANCER
     Dosage: UNK
     Route: 065
     Dates: start: 2008
  5. ERIBULIN MESILATE [Suspect]
     Indication: BREAST CANCER
     Dosage: UNK
     Route: 065
     Dates: start: 201112
  6. LAPATINIB [Suspect]
     Indication: BREAST CANCER
     Dosage: UNK
     Route: 065
     Dates: start: 2008
  7. HERCEPTIN [Suspect]
     Indication: BREAST CANCER
     Dosage: UNK
     Route: 065
     Dates: start: 200406
  8. DOCETAXEL [Concomitant]
     Indication: BREAST CANCER

REACTIONS (4)
  - Second primary malignancy [Not Recovered/Not Resolved]
  - Leukopenia [Not Recovered/Not Resolved]
  - Disease progression [Not Recovered/Not Resolved]
  - Breast cancer [Not Recovered/Not Resolved]
